FAERS Safety Report 7827125-2 (Version None)
Quarter: 2011Q4

REPORT INFORMATION
  Report Type: 
  Country: None (occurrence: None)
  Receive Date: 20111020
  Receipt Date: 20111006
  Transmission Date: 20120403
  Serious: Yes (Death)
  Sender: FDA-Public Use
  Company Number: ES-RANBAXY-2011US-49681

PATIENT
  Sex: Male

DRUGS (1)
  1. ONDANSETRON [Suspect]
     Indication: PRODUCT USED FOR UNKNOWN INDICATION
     Dosage: 2 MG, UNK
     Route: 060

REACTIONS (5)
  - HYPERTHERMIA [None]
  - HEPATIC VEIN THROMBOSIS [None]
  - LYMPHADENOPATHY [None]
  - HYPERTONIA [None]
  - BRONCHOPNEUMONIA [None]
